FAERS Safety Report 6152660-5 (Version None)
Quarter: 2009Q2

REPORT INFORMATION
  Report Type: 
  Country: None (occurrence: None)
  Receive Date: 20090413
  Receipt Date: 20090403
  Transmission Date: 20091009
  Serious: Yes (Hospitalization)
  Sender: FDA-Public Use
  Company Number: DK-ROCHE-617086

PATIENT
  Sex: Male
  Weight: 18.3 kg

DRUGS (9)
  1. VALCYTE [Suspect]
     Route: 065
     Dates: start: 20090206, end: 20090213
  2. VALCYTE [Suspect]
     Dosage: ONCE DAILY
     Route: 065
     Dates: start: 20090214, end: 20090217
  3. MABTHERA [Suspect]
     Route: 042
     Dates: start: 20090113, end: 20090127
  4. MABTHERA [Suspect]
     Route: 042
     Dates: start: 20090128
  5. CELLCEPT [Suspect]
     Indication: IMMUNOSUPPRESSION
     Route: 065
     Dates: start: 20080101
  6. PROGRAF [Suspect]
     Indication: IMMUNOSUPPRESSION
     Dosage: DOSE WAS GRADUALLY REDUCED; HIGHEST DOSE GIVEN 2.8 MG DAILY
     Route: 048
     Dates: start: 20080101, end: 20090101
  7. CYMEVENE [Concomitant]
     Dates: start: 20090113, end: 20090206
  8. PREDNISOLONE [Concomitant]
     Indication: IMMUNOSUPPRESSION
     Dosage: ONCE DAILY
     Route: 048
     Dates: start: 20090101, end: 20090221
  9. PREDNISOLONE [Concomitant]
     Dosage: ONCE DAILY
     Route: 048
     Dates: start: 20090222

REACTIONS (2)
  - EPSTEIN-BARR VIRUS ASSOCIATED LYMPHOPROLIFERATIVE DISORDER [None]
  - NEUTROPENIA [None]
